FAERS Safety Report 23869439 (Version 1)
Quarter: 2024Q2

REPORT INFORMATION
  Report Type: Spontaneous
  Country: DE (occurrence: DE)
  Receive Date: 20240517
  Receipt Date: 20240517
  Transmission Date: 20240716
  Serious: Yes (Other)
  Sender: FDA-Public Use
  Company Number: DE-SANDOZ-SDZ2024DE047654

PATIENT

DRUGS (2)
  1. POTELIGEO [Suspect]
     Active Substance: MOGAMULIZUMAB-KPKC
     Indication: Disease progression
     Dosage: UNK (12 CYCLES)
     Route: 065
  2. MOMETASONE [Suspect]
     Active Substance: MOMETASONE
     Indication: Cutaneous T-cell lymphoma
     Dosage: UNK, QD (TREATED ONCE DAILY)
     Route: 065

REACTIONS (1)
  - Tertiary adrenal insufficiency [Unknown]
